FAERS Safety Report 12431731 (Version 1)
Quarter: 2016Q2

REPORT INFORMATION
  Report Type: Spontaneous
  Country: US (occurrence: None)
  Receive Date: 20160602
  Receipt Date: 20160602
  Transmission Date: 20160815
  Serious: No
  Sender: FDA-Public Use
  Company Number: None

PATIENT
  Age: 27 Year
  Sex: Female
  Weight: 99.79 kg

DRUGS (2)
  1. OXCARBAZEPINE. [Concomitant]
     Active Substance: OXCARBAZEPINE
  2. OLANZAPINE, 10 MG GENERIC FORM OF ZYPREXA [Suspect]
     Active Substance: OLANZAPINE
     Indication: BIPOLAR I DISORDER
     Route: 048

REACTIONS (13)
  - Dizziness [None]
  - Anxiety [None]
  - Paranoia [None]
  - Balance disorder [None]
  - Lethargy [None]
  - Confusional state [None]
  - Irritability [None]
  - Fine motor skill dysfunction [None]
  - Depression [None]
  - Suicidal ideation [None]
  - Restlessness [None]
  - Mental impairment [None]
  - Memory impairment [None]

NARRATIVE: CASE EVENT DATE: 20160406
